FAERS Safety Report 9122923 (Version 1)
Quarter: 2013Q1

REPORT INFORMATION
  Report Type: Spontaneous
  Country: US (occurrence: US)
  Receive Date: 20130227
  Receipt Date: 20130227
  Transmission Date: 20140127
  Serious: No
  Sender: FDA-Public Use
  Company Number: US-GLAXOSMITHKLINE-A0987206A

PATIENT
  Age: 71 Year
  Sex: Female

DRUGS (2)
  1. VALTREX [Suspect]
     Indication: HERPES ZOSTER
     Dosage: 1TAB TWICE PER DAY
     Route: 048
     Dates: start: 20120724
  2. NO CONCURRENT MEDICATION [Concomitant]

REACTIONS (2)
  - Retching [Unknown]
  - Drug administration error [Unknown]
